FAERS Safety Report 6984663-2 (Version None)
Quarter: 2010Q3

REPORT INFORMATION
  Report Type: 
  Country: None (occurrence: None)
  Receive Date: 20100915
  Receipt Date: 20100907
  Transmission Date: 20110219
  Serious: Yes (Other)
  Sender: FDA-Public Use
  Company Number: US-AMGEN-KDL436688

PATIENT
  Sex: Female

DRUGS (1)
  1. ENBREL [Suspect]
     Indication: RHEUMATOID ARTHRITIS
     Route: 058
     Dates: start: 19990601

REACTIONS (5)
  - EOSINOPHIL COUNT INCREASED [None]
  - LYMPHOCYTE COUNT INCREASED [None]
  - LYMPHOMA [None]
  - NEUTROPHIL COUNT DECREASED [None]
  - RED CELL DISTRIBUTION WIDTH INCREASED [None]
